FAERS Safety Report 4589269-0 (Version None)
Quarter: 2005Q1

REPORT INFORMATION
  Report Type: 
  Country: None (occurrence: None)
  Receive Date: 20050217
  Receipt Date: 20050217
  Transmission Date: 20050727
  Serious: Yes (Hospitalization)
  Sender: FDA-Public Use
  Company Number: None

PATIENT
  Age: 8 Year
  Sex: Female

DRUGS (1)
  1. HEPARIN [Suspect]
     Indication: THROMBOSIS PROPHYLAXIS
     Dosage: TIW FLUSH EACH LUMEN INTRAVENOU
     Route: 042
     Dates: start: 20041201, end: 20050130

REACTIONS (2)
  - BLOOD CULTURE POSITIVE [None]
  - PSEUDOMONAS INFECTION [None]
